FAERS Safety Report 4343831-9 (Version None)
Quarter: 2004Q2

REPORT INFORMATION
  Report Type: 
  Country: None (occurrence: None)
  Receive Date: 20040419
  Receipt Date: 20040406
  Transmission Date: 20050107
  Serious: Yes (Death)
  Sender: FDA-Public Use
  Company Number: US-JNJFOC-20040202685

PATIENT
  Age: 62 Year
  Sex: Female

DRUGS (2)
  1. REMICADE [Suspect]
     Indication: SARCOIDOSIS
     Dosage: 300 MG, INTRAVENOUS
     Route: 042
     Dates: start: 20030304, end: 20031002
  2. IMURAN [Concomitant]

REACTIONS (19)
  - ABDOMINAL PAIN UPPER [None]
  - ADRENAL CORTEX ATROPHY [None]
  - ANGIOTENSIN CONVERTING ENZYME INCREASED [None]
  - AORTIC ATHEROSCLEROSIS [None]
  - ARTERIAL RUPTURE [None]
  - ARTERY DISSECTION [None]
  - CORONARY ARTERY ATHEROSCLEROSIS [None]
  - CYSTITIS NONINFECTIVE [None]
  - HAEMOGLOBIN DECREASED [None]
  - MULTIPLE MYELOMA [None]
  - PARAPROTEINAEMIA [None]
  - PERITONEAL HAEMORRHAGE [None]
  - PLEURAL EFFUSION [None]
  - POEMS SYNDROME [None]
  - PYELONEPHRITIS CHRONIC [None]
  - RED BLOOD CELL SEDIMENTATION RATE INCREASED [None]
  - RETROPERITONEAL HAEMORRHAGE [None]
  - UTERINE LEIOMYOMA [None]
  - VASCULITIS NECROTISING [None]
